FAERS Safety Report 5123636-1 (Version None)
Quarter: 2006Q4

REPORT INFORMATION
  Report Type: 
  Country: None (occurrence: None)
  Receive Date: 20060910
  Receipt Date: 20060127
  Transmission Date: 20070319
  Serious: Yes (Hospitalization)
  Sender: FDA-Public Use
  Company Number: US200601005105

PATIENT
  Sex: Female

DRUGS (4)
  1. ILETIN [Suspect]
     Dosage: 18 U, EACH MORNING
     Dates: end: 20060101
  2. ILETIN [Suspect]
     Indication: DIABETES MELLITUS
     Dosage: AS NEEDED
  3. LEVOXYL [Concomitant]
  4. ACIPHEX [Concomitant]

REACTIONS (3)
  - BLOOD GLUCOSE INCREASED [None]
  - INJECTION SITE REACTION [None]
  - LOSS OF CONSCIOUSNESS [None]
